FAERS Safety Report 9099457 (Version 1)
Quarter: 2013Q1

REPORT INFORMATION
  Report Type: Spontaneous
  Country: US (occurrence: US)
  Receive Date: 20130214
  Receipt Date: 20130214
  Transmission Date: 20140127
  Serious: Yes (Hospitalization)
  Sender: FDA-Public Use
  Company Number: US-JNJFOC-20130201603

PATIENT
  Age: 89 None
  Sex: Female
  Weight: 72.58 kg

DRUGS (3)
  1. XARELTO [Suspect]
     Indication: THROMBOSIS
     Route: 048
     Dates: start: 20130121, end: 20130121
  2. COUMADIN [Suspect]
     Indication: PRODUCT USED FOR UNKNOWN INDICATION
     Route: 065
     Dates: start: 201301
  3. UNKNOWN MEDICATION [Concomitant]
     Indication: FLUID RETENTION
     Route: 048

REACTIONS (2)
  - Haemorrhage [Recovered/Resolved]
  - Thrombosis [Unknown]
